FAERS Safety Report 22191837 (Version 1)
Quarter: 2023Q2

REPORT INFORMATION
  Report Type: Spontaneous
  Country: FR (occurrence: FR)
  Receive Date: 20230410
  Receipt Date: 20230410
  Transmission Date: 20230722
  Serious: Yes (Other)
  Sender: FDA-Public Use
  Company Number: None

PATIENT
  Age: 55 Year
  Sex: Male

DRUGS (3)
  1. FLUDARABINE PHOSPHATE [Suspect]
     Active Substance: FLUDARABINE PHOSPHATE
     Indication: Tumour lysis syndrome
     Dosage: FLUDARABINE (PHOSPHATE DE)
     Dates: start: 2020, end: 202005
  2. RITUXIMAB [Suspect]
     Active Substance: RITUXIMAB
     Indication: Tumour lysis syndrome
     Dosage: ((MAMMAL/HAMSTER/CHO CELLS))
     Dates: start: 2020, end: 202005
  3. CYCLOPHOSPHAMIDE [Suspect]
     Active Substance: CYCLOPHOSPHAMIDE
     Indication: Tumour lysis syndrome
     Dates: start: 2020, end: 202005

REACTIONS (1)
  - Dilated cardiomyopathy [Not Recovered/Not Resolved]
